FAERS Safety Report 5960974-4 (Version None)
Quarter: 2008Q4

REPORT INFORMATION
  Report Type: 
  Country: None (occurrence: None)
  Receive Date: 20081121
  Receipt Date: 20081118
  Transmission Date: 20090506
  Serious: Yes (Hospitalization, Other)
  Sender: FDA-Public Use
  Company Number: BR-BRISTOL-MYERS SQUIBB COMPANY-14412407

PATIENT
  Age: 70 Year
  Sex: Female
  Weight: 65 kg

DRUGS (2)
  1. HYDREA [Suspect]
     Indication: CHRONIC MYELOID LEUKAEMIA
     Dosage: TREATMENT WAS RECEIVED ABOUT 7 YEARS AGO AND RESTARTED IN 2008
     Route: 048
     Dates: start: 20080101, end: 20080101
  2. HYDREA [Suspect]
     Indication: PLATELET COUNT INCREASED
     Dosage: TREATMENT WAS RECEIVED ABOUT 7 YEARS AGO AND RESTARTED IN 2008
     Route: 048
     Dates: start: 20080101, end: 20080101

REACTIONS (8)
  - ANAEMIA [None]
  - HAEMATOCHEZIA [None]
  - HAEMATOMA [None]
  - HAEMATURIA [None]
  - HAEMOPTYSIS [None]
  - LEUKOPENIA [None]
  - PLATELET COUNT DECREASED [None]
  - SYNCOPE [None]
